FAERS Safety Report 14881138 (Version 4)
Quarter: 2019Q3

REPORT INFORMATION
  Report Type: Spontaneous
  Country: AU (occurrence: AU)
  Receive Date: 20180511
  Receipt Date: 20190715
  Transmission Date: 20191004
  Serious: Yes (Hospitalization, Other)
  Sender: FDA-Public Use
  Company Number: AU-MYLANLABS-2018M1031883

PATIENT
  Age: 47 Year
  Sex: Male

DRUGS (10)
  1. CLOZARIL [Suspect]
     Active Substance: CLOZAPINE
     Indication: SCHIZOPHRENIA
     Dosage: 825 MILLIGRAM
     Route: 048
     Dates: start: 20040713
  2. CLOZARIL [Suspect]
     Active Substance: CLOZAPINE
     Dosage: 650 MILLIGRAM, PM
     Route: 048
     Dates: start: 20180801
  3. CLOZARIL [Suspect]
     Active Substance: CLOZAPINE
     Dosage: 625 MILLIGRAM, PM
     Route: 048
     Dates: start: 20180814
  4. CLOZARIL [Suspect]
     Active Substance: CLOZAPINE
     Dosage: 625 MILLIGRAM, PM
     Route: 048
     Dates: start: 20180807
  5. CLOZARIL [Suspect]
     Active Substance: CLOZAPINE
     Dosage: 200 MILLIGRAM, AM
     Route: 048
     Dates: start: 20180814
  6. CLOZARIL [Suspect]
     Active Substance: CLOZAPINE
     Dosage: 200 MILLIGRAM, AM
     Route: 048
     Dates: start: 20180807
  7. CLOZARIL [Suspect]
     Active Substance: CLOZAPINE
     Dosage: 200 MILLIGRAM, AM
     Route: 048
     Dates: start: 20180723
  8. CLOZARIL [Suspect]
     Active Substance: CLOZAPINE
     Dosage: 625 MILLIGRAM, PM
     Route: 048
     Dates: start: 20180723
  9. CLOZARIL [Suspect]
     Active Substance: CLOZAPINE
     Dosage: 200 MILLIGRAM, AM
     Route: 048
     Dates: start: 20180801
  10. VALPROATE SODIUM. [Suspect]
     Active Substance: VALPROATE SODIUM
     Indication: PRODUCT USED FOR UNKNOWN INDICATION
     Dosage: UNK
     Dates: start: 201902

REACTIONS (7)
  - Nervous system disorder [Unknown]
  - Neuroleptic malignant syndrome [Unknown]
  - Thrombocytopenia [Recovered/Resolved]
  - Lymphocyte count decreased [Not Recovered/Not Resolved]
  - Antipsychotic drug level above therapeutic [Not Recovered/Not Resolved]
  - Disorientation [Unknown]
  - Respiratory tract infection [Unknown]

NARRATIVE: CASE EVENT DATE: 201803
